FAERS Safety Report 25129870 (Version 1)
Quarter: 2025Q1

REPORT INFORMATION
  Report Type: Report from Study
  Country: US (occurrence: US)
  Receive Date: 20250327
  Receipt Date: 20250327
  Transmission Date: 20250409
  Serious: Yes (Other)
  Sender: OTSUKA
  Company Number: US-MMM-Otsuka-AHU3RPFO

PATIENT
  Sex: Female

DRUGS (1)
  1. TOLVAPTAN [Suspect]
     Active Substance: TOLVAPTAN
     Indication: Product used for unknown indication
     Route: 065
     Dates: end: 202411

REACTIONS (2)
  - Glomerular filtration rate decreased [Unknown]
  - Treatment noncompliance [Unknown]
